FAERS Safety Report 7333470-X (Version None)
Quarter: 2011Q1

REPORT INFORMATION
  Report Type: 
  Country: None (occurrence: None)
  Receive Date: 20110304
  Receipt Date: 20110218
  Transmission Date: 20110831
  Serious: Yes (Hospitalization)
  Sender: FDA-Public Use
  Company Number: JP-GENENTECH-314395

PATIENT
  Sex: Female
  Weight: 70 kg

DRUGS (18)
  1. ZADITEN [Concomitant]
     Indication: PRODUCT USED FOR UNKNOWN INDICATION
  2. MEPTIN [Concomitant]
     Indication: PRODUCT USED FOR UNKNOWN INDICATION
  3. DEPAS [Concomitant]
     Indication: PRODUCT USED FOR UNKNOWN INDICATION
  4. PAXIL [Concomitant]
     Indication: PRODUCT USED FOR UNKNOWN INDICATION
  5. ACTONEL [Concomitant]
     Indication: PRODUCT USED FOR UNKNOWN INDICATION
  6. SEREVENT [Concomitant]
     Indication: PRODUCT USED FOR UNKNOWN INDICATION
  7. HYPEN [Concomitant]
     Indication: PRODUCT USED FOR UNKNOWN INDICATION
  8. THEO-DUR [Concomitant]
     Indication: PRODUCT USED FOR UNKNOWN INDICATION
  9. PREDONINE [Concomitant]
     Indication: PRODUCT USED FOR UNKNOWN INDICATION
  10. HIRNAMIN [Concomitant]
     Indication: PRODUCT USED FOR UNKNOWN INDICATION
  11. LENDORMIN [Concomitant]
     Indication: PRODUCT USED FOR UNKNOWN INDICATION
  12. MYSLEE [Concomitant]
     Indication: PRODUCT USED FOR UNKNOWN INDICATION
  13. XOLAIR [Suspect]
     Indication: ASTHMA
     Dosage: 375 MG, Q2W
     Route: 058
  14. SINGULAIR [Concomitant]
     Indication: PRODUCT USED FOR UNKNOWN INDICATION
  15. LUPRAC [Concomitant]
     Indication: PRODUCT USED FOR UNKNOWN INDICATION
  16. MERCAZOLE [Concomitant]
     Indication: PRODUCT USED FOR UNKNOWN INDICATION
  17. ATARAX [Concomitant]
     Indication: PRODUCT USED FOR UNKNOWN INDICATION
  18. MEILAX [Concomitant]
     Indication: PRODUCT USED FOR UNKNOWN INDICATION

REACTIONS (1)
  - ASTHMA [None]
